FAERS Safety Report 8790296 (Version 2)
Quarter: 2012Q4

REPORT INFORMATION
  Report Type: 
  Country: DE (occurrence: DE)
  Receive Date: 20120917
  Receipt Date: 20121012
  Transmission Date: 20130627
  Serious: Yes (Hospitalization)
  Sender: FDA-Public Use
  Company Number: PHHY2012DE078718

PATIENT
  Age: 23 Year
  Sex: Female

DRUGS (2)
  1. MINOCYCLINE [Suspect]
     Indication: ROSACEA
     Dosage: 100 mg, UNK
  2. MINOCYCLINE [Suspect]
     Dosage: 50 mg, UNK

REACTIONS (20)
  - Respiratory failure [Recovered/Resolved]
  - Encephalopathy [Recovered/Resolved]
  - Hepatic failure [Recovered/Resolved]
  - Pyrexia [Recovered/Resolved]
  - Lymphadenopathy [Recovered/Resolved]
  - Rash erythematous [Recovered/Resolved]
  - Rash pruritic [Recovered/Resolved]
  - Rash maculo-papular [Recovered/Resolved]
  - Face oedema [Recovered/Resolved]
  - Abdominal discomfort [Recovered/Resolved]
  - Eosinophilia [Recovered/Resolved]
  - Splenomegaly [Recovered/Resolved]
  - Malaise [Recovered/Resolved]
  - Abdominal pain [Recovered/Resolved]
  - Generalised oedema [Recovered/Resolved]
  - Liver injury [Recovered/Resolved]
  - Hepatic enzyme increased [Recovered/Resolved]
  - Coagulopathy [Recovered/Resolved]
  - Ascites [Recovered/Resolved]
  - Pleural effusion [Recovered/Resolved]
